FAERS Safety Report 6270442-0 (Version None)
Quarter: 2009Q3

REPORT INFORMATION
  Report Type: 
  Country: None (occurrence: None)
  Receive Date: 20090716
  Receipt Date: 20090713
  Transmission Date: 20100115
  Serious: Yes (Death, Other)
  Sender: FDA-Public Use
  Company Number: PHHY2009AU28653

PATIENT
  Sex: Female

DRUGS (5)
  1. CLOZARIL [Suspect]
     Dosage: UNK
     Dates: start: 20010920
  2. CLOZARIL [Suspect]
     Dosage: 550 MG
  3. CLOZARIL [Suspect]
     Dosage: 650 MG
  4. CLOZARIL [Suspect]
     Dosage: 700 MG
  5. CLOZARIL [Suspect]
     Dosage: UNK
     Dates: end: 20090714

REACTIONS (1)
  - ACUTE MYOCARDIAL INFARCTION [None]
